FAERS Safety Report 6296666-4 (Version None)
Quarter: 2009Q3

REPORT INFORMATION
  Report Type: 
  Country: None (occurrence: None)
  Receive Date: 20090804
  Receipt Date: 20090731
  Transmission Date: 20100115
  Serious: No
  Sender: FDA-Public Use
  Company Number: US-B.I. PHARMACEUTICALS,INC./RIDGEFIELD-2009-BP-09038BP

PATIENT
  Sex: Female

DRUGS (5)
  1. SPIRIVA [Suspect]
     Indication: CHRONIC OBSTRUCTIVE PULMONARY DISEASE
     Dosage: 18 MCG
     Route: 055
     Dates: start: 20081001
  2. METOPROLOL TARTRATE [Concomitant]
     Indication: HYPERTENSION
  3. ASPIRIN [Concomitant]
     Indication: PROPHYLAXIS
  4. SIMVASTATIN [Concomitant]
     Indication: BLOOD CHOLESTEROL INCREASED
  5. CLONAZEPAM [Concomitant]
     Indication: ANXIETY

REACTIONS (1)
  - DYSPNOEA [None]
